FAERS Safety Report 12865715 (Version 1)
Quarter: 2016Q4

REPORT INFORMATION
  Report Type: Spontaneous
  Country: US (occurrence: US)
  Receive Date: 20161020
  Receipt Date: 20161020
  Transmission Date: 20170207
  Serious: No
  Sender: FDA-Public Use
  Company Number: US-009507513-1610USA003989

PATIENT

DRUGS (6)
  1. GEMIFLOXACIN [Suspect]
     Active Substance: GEMIFLOXACIN
  2. MOXIFLOXACIN. [Suspect]
     Active Substance: MOXIFLOXACIN
  3. NOROXIN [Suspect]
     Active Substance: NORFLOXACIN
     Route: 048
  4. OFLOXACIN. [Suspect]
     Active Substance: OFLOXACIN
  5. LEVAQUIN [Suspect]
     Active Substance: LEVOFLOXACIN
  6. CIPROFLOXACIN. [Suspect]
     Active Substance: CIPROFLOXACIN

REACTIONS (2)
  - Product use issue [Unknown]
  - Off label use [Unknown]
